FAERS Safety Report 4312770-1 (Version None)
Quarter: 2004Q1

REPORT INFORMATION
  Report Type: 
  Country: None (occurrence: None)
  Receive Date: 20040304
  Receipt Date: 20040225
  Transmission Date: 20041129
  Serious: Yes (Hospitalization)
  Sender: FDA-Public Use
  Company Number: GBWYE477622DEC03

PATIENT
  Age: 75 Year
  Sex: Male

DRUGS (1)
  1. EFFEXOR XR [Suspect]
     Dosage: 75MG FREQUENCY UNKNOWN

REACTIONS (2)
  - BILE DUCT CANCER [None]
  - LIVER FUNCTION TEST ABNORMAL [None]
